FAERS Safety Report 5196150-5 (Version None)
Quarter: 2006Q4

REPORT INFORMATION
  Report Type: 
  Country: None (occurrence: None)
  Receive Date: 20061220
  Receipt Date: 20061204
  Transmission Date: 20070319
  Serious: Yes (Other)
  Sender: FDA-Public Use
  Company Number: PHO-2006-043

PATIENT
  Sex: 0

DRUGS (1)
  1. PHOTOFRIN [Suspect]
     Indication: MENINGIOMA
     Dosage: 2 MG/KG INTRAVENOUS; 1 ADMINISTRATION
     Route: 042

REACTIONS (3)
  - CEREBRAL HAEMATOMA [None]
  - INTRACRANIAL TUMOUR HAEMORRHAGE [None]
  - SURGICAL PROCEDURE REPEATED [None]
